FAERS Safety Report 10185586 (Version 1)
Quarter: 2014Q2

REPORT INFORMATION
  Report Type: Spontaneous
  Country: US (occurrence: None)
  Receive Date: 20140520
  Receipt Date: 20140520
  Transmission Date: 20141212
  Serious: Yes (Hospitalization)
  Sender: FDA-Public Use
  Company Number: None

PATIENT
  Age: 15 Year
  Sex: Female
  Weight: 74 kg

DRUGS (2)
  1. ZARAH [Suspect]
     Dosage: 1 TAB
     Route: 048
  2. ZARAH (ETHINYLESTRADIOL / DROSPIRENONE) [Concomitant]

REACTIONS (1)
  - Pulmonary embolism [None]
